FAERS Safety Report 10781824 (Version 1)
Quarter: 2015Q1

REPORT INFORMATION
  Report Type: Spontaneous
  Country: US (occurrence: None)
  Receive Date: 20150209
  Receipt Date: 20150209
  Transmission Date: 20150721
  Serious: No
  Sender: FDA-Public Use
  Company Number: None

PATIENT
  Age: 33 Year
  Sex: Female

DRUGS (1)
  1. HUMIRA [Suspect]
     Active Substance: ADALIMUMAB
     Indication: COLITIS ULCERATIVE
     Dates: start: 20140912

REACTIONS (4)
  - Injection site warmth [None]
  - Injection site erythema [None]
  - Injection site urticaria [None]
  - Injection site pain [None]

NARRATIVE: CASE EVENT DATE: 20141201
